FAERS Safety Report 15012575 (Version 1)
Quarter: 2018Q2

REPORT INFORMATION
  Report Type: Spontaneous
  Country: US (occurrence: US)
  Receive Date: 20180614
  Receipt Date: 20180614
  Transmission Date: 20180711
  Serious: No
  Sender: FDA-Public Use
  Company Number: US-GALDERMA-US18010494

PATIENT
  Age: 20 Year
  Sex: Male

DRUGS (4)
  1. PROACTIV MD ADAPALENE ACNE TREATMENT [Suspect]
     Active Substance: ADAPALENE
     Indication: ACNE
     Dosage: 0.1%
     Route: 061
     Dates: start: 20171019, end: 201712
  2. ALBUTEROL. [Concomitant]
     Active Substance: ALBUTEROL
  3. PRILOSEC [Concomitant]
     Active Substance: OMEPRAZOLE MAGNESIUM
  4. SYMBICORT [Concomitant]
     Active Substance: BUDESONIDE\FORMOTEROL FUMARATE DIHYDRATE

REACTIONS (3)
  - Acne [Not Recovered/Not Resolved]
  - Dermatitis [Not Recovered/Not Resolved]
  - Erythema [Not Recovered/Not Resolved]

NARRATIVE: CASE EVENT DATE: 201711
